FAERS Safety Report 14965866 (Version 1)
Quarter: 2018Q2

REPORT INFORMATION
  Report Type: Spontaneous
  Country: CA (occurrence: CA)
  Receive Date: 20180602
  Receipt Date: 20180602
  Transmission Date: 20180711
  Serious: Yes (Hospitalization)
  Sender: FDA-Public Use
  Company Number: CA-TEVA-2018-CA-898236

PATIENT
  Age: 56 Year
  Sex: Female
  Weight: 89.44 kg

DRUGS (5)
  1. CALCIUM [Concomitant]
     Active Substance: CALCIUM
  2. COUMADINE [Concomitant]
     Active Substance: WARFARIN SODIUM
  3. EFFEXOR [Concomitant]
     Active Substance: VENLAFAXINE HYDROCHLORIDE
  4. PANTOLOC [Concomitant]
     Active Substance: PANTOPRAZOLE SODIUM
  5. ACT ALENDRONATE [Suspect]
     Active Substance: ALENDRONATE SODIUM
     Indication: OSTEOPOROSIS
     Route: 048

REACTIONS (7)
  - Hip arthroplasty [Recovering/Resolving]
  - Tibia fracture [Recovering/Resolving]
  - Cast application [Recovering/Resolving]
  - Limb reconstructive surgery [Recovering/Resolving]
  - Atypical fracture [Recovering/Resolving]
  - Femur fracture [Recovering/Resolving]
  - Hip fracture [Recovering/Resolving]
